FAERS Safety Report 12046034 (Version 1)
Quarter: 2016Q1

REPORT INFORMATION
  Report Type: Report from Study
  Country: US (occurrence: US)
  Receive Date: 20160208
  Receipt Date: 20160208
  Transmission Date: 20160526
  Serious: No
  Sender: FDA-Public Use
  Company Number: US-ABBVIE-15P-163-1366497-00

PATIENT
  Age: 57 Year
  Sex: Male

DRUGS (4)
  1. HUMIRA [Suspect]
     Active Substance: ADALIMUMAB
     Indication: ANKYLOSING SPONDYLITIS
  2. TRAMADOL. [Concomitant]
     Active Substance: TRAMADOL
     Indication: PRODUCT USED FOR UNKNOWN INDICATION
  3. HUMIRA [Suspect]
     Active Substance: ADALIMUMAB
     Indication: RHEUMATOID ARTHRITIS
     Route: 058
     Dates: start: 20150301
  4. VOLTAREN [Concomitant]
     Active Substance: DICLOFENAC SODIUM
     Indication: PRODUCT USED FOR UNKNOWN INDICATION

REACTIONS (12)
  - Chromaturia [Unknown]
  - Wound drainage [Unknown]
  - Dizziness [Unknown]
  - Oral pain [Unknown]
  - Nausea [Unknown]
  - Back pain [Unknown]
  - Diarrhoea [Unknown]
  - Hypersomnia [Unknown]
  - Cold sweat [Unknown]
  - Mouth swelling [Unknown]
  - Dysuria [Unknown]
  - Tooth abscess [Unknown]

NARRATIVE: CASE EVENT DATE: 201503
